FAERS Safety Report 14494813 (Version 1)
Quarter: 2018Q1

REPORT INFORMATION
  Report Type: Spontaneous
  Country: CN (occurrence: CN)
  Receive Date: 20180206
  Receipt Date: 20180206
  Transmission Date: 20180509
  Serious: Yes (Hospitalization)
  Sender: FDA-Public Use
  Company Number: PHHY2018CN017830

PATIENT
  Age: 58 Year
  Sex: Female
  Weight: 50 kg

DRUGS (1)
  1. TEGRETOL [Suspect]
     Active Substance: CARBAMAZEPINE
     Indication: TRIGEMINAL NERVE DISORDER
     Dosage: 200 MG, BID
     Route: 048
     Dates: start: 20171025, end: 20171108

REACTIONS (4)
  - Erythema multiforme [Recovering/Resolving]
  - Pyrexia [Recovered/Resolved]
  - Keratitis [Recovering/Resolving]
  - Oropharyngeal pain [Recovering/Resolving]

NARRATIVE: CASE EVENT DATE: 20171108
